FAERS Safety Report 14009469 (Version 1)
Quarter: 2017Q3

REPORT INFORMATION
  Report Type: Spontaneous
  Country: CH (occurrence: CH)
  Receive Date: 20170925
  Receipt Date: 20170925
  Transmission Date: 20171128
  Serious: Yes (Life-Threatening)
  Sender: FDA-Public Use
  Company Number: CH-ABBVIE-17P-151-2112217-00

PATIENT
  Age: 74 Year
  Sex: Male
  Weight: 89 kg

DRUGS (5)
  1. ZINACEF [Suspect]
     Active Substance: CEFUROXIME SODIUM
     Indication: ANTIBIOTIC PROPHYLAXIS
     Route: 042
     Dates: start: 20170630, end: 20170630
  2. PROTAMIN IPEX [Suspect]
     Active Substance: PROTAMINE HYDROCHLORIDE
     Indication: HEPARIN NEUTRALISATION THERAPY
     Route: 041
     Dates: start: 20170630, end: 20170630
  3. SIMDAX [Suspect]
     Active Substance: LEVOSIMENDAN
     Indication: CARDIAC FAILURE
     Route: 042
     Dates: start: 20170630, end: 20170630
  4. SUFENTA FORTE [Concomitant]
     Indication: ANALGESIC THERAPY
     Route: 042
     Dates: start: 20170630, end: 20170630
  5. CYKLOKAPRON [Concomitant]
     Active Substance: TRANEXAMIC ACID
     Indication: PROCOAGULANT THERAPY
     Route: 042
     Dates: start: 20170630, end: 20170630

REACTIONS (1)
  - Hypotension [Recovered/Resolved]

NARRATIVE: CASE EVENT DATE: 20170630
